FAERS Safety Report 5735809-5 (Version None)
Quarter: 2008Q2

REPORT INFORMATION
  Report Type: 
  Country: None (occurrence: None)
  Receive Date: 20080508
  Receipt Date: 20080508
  Transmission Date: 20081010
  Serious: No
  Sender: FDA-Public Use
  Company Number: None

PATIENT
  Age: 34 Year
  Sex: Female
  Weight: 61.2356 kg

DRUGS (3)
  1. CREST PRO HEALTH RINSE PROCTER + GAMBLE [Suspect]
     Indication: DENTAL PLAQUE
     Dosage: 20 ML 2 X /DAY PO
     Route: 048
  2. CREST PRO HEALTH RINSE PROCTER + GAMBLE [Suspect]
     Indication: GINGIVITIS
     Dosage: 20 ML 2 X /DAY PO
     Route: 048
  3. CREST PRO HEALTH RINSE PROCTER + GAMBLE [Suspect]
     Indication: PROPHYLAXIS
     Dosage: 20 ML 2 X /DAY PO
     Route: 048

REACTIONS (2)
  - AGEUSIA [None]
  - TOOTH DISCOLOURATION [None]
